FAERS Safety Report 5262530-2 (Version None)
Quarter: 2007Q1

REPORT INFORMATION
  Report Type: 
  Country: None (occurrence: None)
  Receive Date: 20070308
  Receipt Date: 20070308
  Transmission Date: 20070707
  Serious: Yes (Other)
  Sender: FDA-Public Use
  Company Number: None

PATIENT
  Sex: Male
  Weight: 92 kg

DRUGS (2)
  1. GEODON [Suspect]
     Indication: SCHIZOPHRENIA, PARANOID TYPE
     Dosage: 100MG  BID  PO
     Route: 048
     Dates: start: 20061109, end: 20061114
  2. GEODON [Suspect]
     Indication: SCHIZOPHRENIA, PARANOID TYPE
     Dosage: 10MG/0.5ML  BID PRN  IM
     Route: 030
     Dates: start: 20061103, end: 20061114

REACTIONS (1)
  - RASH GENERALISED [None]
